FAERS Safety Report 10076511 (Version 1)
Quarter: 2014Q2

REPORT INFORMATION
  Report Type: Spontaneous
  Country: US (occurrence: US)
  Receive Date: 20140414
  Receipt Date: 20140414
  Transmission Date: 20141212
  Serious: Yes (Other)
  Sender: FDA-Public Use
  Company Number: US-BAYER-2014-052262

PATIENT
  Age: 53 Year
  Sex: Female
  Weight: 55.78 kg

DRUGS (12)
  1. BETASERON [Suspect]
     Indication: MULTIPLE SCLEROSIS
  2. AMPYRA [Suspect]
     Indication: MULTIPLE SCLEROSIS
     Dosage: 10 MG, Q12H
     Route: 048
     Dates: start: 201209
  3. AMPYRA [Suspect]
     Indication: GAIT DISTURBANCE
     Dosage: 10 MG, UNK
     Dates: end: 2013
  4. AMPYRA [Suspect]
     Indication: MULTIPLE SCLEROSIS
     Dosage: 10 MG, QD
     Dates: start: 20140210
  5. ZANAFLEX [Suspect]
     Indication: MUSCLE SPASMS
     Dosage: UNK
  6. ZANAFLEX [Suspect]
     Indication: MULTIPLE SCLEROSIS
  7. VALIUM [Concomitant]
     Dosage: UNK
  8. DICYCLOMINE [Concomitant]
     Dosage: UNK
  9. SOMA [Concomitant]
     Dosage: UNK
  10. TYLENOL [PARACETAMOL] [Concomitant]
  11. BENADRYL [Concomitant]
     Dosage: UNK
  12. MOBIC [Concomitant]
     Dosage: 15 MG, UNK

REACTIONS (9)
  - Diverticulitis [Recovering/Resolving]
  - Swollen tongue [Recovered/Resolved]
  - Hyperhidrosis [Recovered/Resolved]
  - Gingival bleeding [Recovering/Resolving]
  - Gingival erythema [Recovering/Resolving]
  - Muscle spasms [Recovering/Resolving]
  - Constipation [Not Recovered/Not Resolved]
  - Paraesthesia [Recovering/Resolving]
  - Fall [Unknown]
